FAERS Safety Report 6940564-7 (Version None)
Quarter: 2010Q3

REPORT INFORMATION
  Report Type: 
  Country: None (occurrence: None)
  Receive Date: 20100817
  Receipt Date: 20100413
  Transmission Date: 20110219
  Serious: Yes (Hospitalization, Other)
  Sender: FDA-Public Use
  Company Number: 20108566

PATIENT
  Age: 63 Year
  Sex: Male

DRUGS (1)
  1. LIORESAL [Suspect]
     Indication: MUSCLE SPASTICITY
     Dosage: 74.95 MCG, DAILY, INTRATHECAL
     Route: 037

REACTIONS (4)
  - ANTIBIOTIC THERAPY [None]
  - HOSPITALISATION [None]
  - IMPLANT SITE INFECTION [None]
  - MEDICAL DEVICE REMOVAL [None]
